FAERS Safety Report 9801611 (Version 2)
Quarter: 2014Q1

REPORT INFORMATION
  Report Type: Spontaneous
  Country: US (occurrence: US)
  Receive Date: 20140107
  Receipt Date: 20140107
  Transmission Date: 20141002
  Serious: Yes (Hospitalization, Other)
  Sender: FDA-Public Use
  Company Number: PHEH2009US019111

PATIENT
  Age: 57 Year
  Sex: Female
  Weight: 61.22 kg

DRUGS (19)
  1. ZOMETA [Suspect]
     Indication: BONE CANCER
     Route: 042
     Dates: start: 200504, end: 200607
  2. MULTIVITAMINS [Concomitant]
  3. NEXIUM [Concomitant]
  4. MUCINEX [Concomitant]
  5. LEVOTHYROXINE [Concomitant]
  6. PREMARIN [Concomitant]
  7. CALTRATE [Concomitant]
  8. ADVAIR [Concomitant]
  9. OXYCODONE [Concomitant]
  10. PENICILLIN ^GRUNENTHAL^ [Concomitant]
  11. METRONIDAZOLE [Concomitant]
  12. HYDROMORPHONE [Concomitant]
  13. GUAIFENESIN [Concomitant]
  14. ONE-A-DAY MAXIMUM-FORMULA [Concomitant]
  15. VIOXX [Concomitant]
  16. PRILOSEC [Concomitant]
  17. OSTEO BI-FLEX [Concomitant]
  18. ECOTRIN [Concomitant]
  19. VICODIN [Concomitant]

REACTIONS (136)
  - Thyroid disorder [Unknown]
  - Ovarian adenoma [Unknown]
  - Breast calcifications [Unknown]
  - Metastases to pelvis [Unknown]
  - Lung carcinoma cell type unspecified stage 0 [Unknown]
  - Cartilage neoplasm [Unknown]
  - Metastases to heart [Unknown]
  - Metastases to the mediastinum [Unknown]
  - Metastases to liver [Unknown]
  - Neuroendocrine tumour [Unknown]
  - Second primary malignancy [Unknown]
  - Renal cyst [Unknown]
  - Rib fracture [Unknown]
  - Osteoporosis [Unknown]
  - Metastases to retroperitoneum [Unknown]
  - Cardiac murmur [Unknown]
  - Hydronephrosis [Unknown]
  - Urethral obstruction [Unknown]
  - Mass [Unknown]
  - Pulmonary mass [Unknown]
  - Local swelling [Unknown]
  - Calcinosis [Unknown]
  - Bone neoplasm [Unknown]
  - Pelvic neoplasm [Unknown]
  - Adrenal disorder [Unknown]
  - Vertebral artery hypoplasia [Unknown]
  - Transverse sinus thrombosis [Unknown]
  - Intracranial venous sinus thrombosis [Unknown]
  - Jugular vein thrombosis [Unknown]
  - Metastases to abdominal wall [Unknown]
  - Osteosclerosis [Unknown]
  - Wheezing [Unknown]
  - Dyspepsia [Unknown]
  - Pain in extremity [Unknown]
  - Myositis ossificans [Unknown]
  - Tooth disorder [Unknown]
  - Renal failure [Unknown]
  - Urine flow decreased [Unknown]
  - Metastases to bone [Unknown]
  - Malignant neoplasm progression [Unknown]
  - Tricuspid valve incompetence [Unknown]
  - Pulmonary valve incompetence [Unknown]
  - Neuropathy peripheral [Recovering/Resolving]
  - Mitral valve prolapse [Unknown]
  - Ureteric obstruction [Unknown]
  - Anaemia [Unknown]
  - Retroperitoneal fibrosis [Unknown]
  - Barrett^s oesophagus [Unknown]
  - Inflammation [Unknown]
  - Abdominal pain [Unknown]
  - Hot flush [Unknown]
  - Intervertebral disc protrusion [Unknown]
  - Oral neoplasm benign [Unknown]
  - Musculoskeletal chest pain [Unknown]
  - Arthritis [Unknown]
  - Aortic valve incompetence [Unknown]
  - Hypothyroidism [Unknown]
  - Gastrooesophageal reflux disease [Unknown]
  - Osteoarthritis [Unknown]
  - Osteonecrosis of jaw [Unknown]
  - Injury [Unknown]
  - Pain [Unknown]
  - Anxiety [Unknown]
  - Decreased interest [Unknown]
  - Periodontitis [Unknown]
  - Gingival pain [Unknown]
  - Dental caries [Unknown]
  - Metastases to spine [Unknown]
  - Diverticulum [Unknown]
  - Adnexa uteri mass [Unknown]
  - Adrenal mass [Unknown]
  - Hiatus hernia [Unknown]
  - Spinal fracture [Unknown]
  - Lumbar spinal stenosis [Unknown]
  - Atelectasis [Unknown]
  - Carcinoid tumour [Unknown]
  - Asthma [Unknown]
  - Spinal disorder [Unknown]
  - Cough [Unknown]
  - Gallbladder disorder [Unknown]
  - Arthropathy [Unknown]
  - Hepatic lesion [Unknown]
  - Toothache [Unknown]
  - Fibroma [Unknown]
  - Hyperkeratosis [Unknown]
  - Exostosis of jaw [Unknown]
  - Muscle spasms [Unknown]
  - Upper respiratory tract infection [Unknown]
  - Flatulence [Unknown]
  - Rhinorrhoea [Unknown]
  - Cholelithiasis [Unknown]
  - Renal mass [Unknown]
  - Large intestine polyp [Unknown]
  - Dysphagia [Unknown]
  - Gastric polyps [Unknown]
  - Wound [Unknown]
  - Exposed bone in jaw [Unknown]
  - Blood chromogranin A increased [Unknown]
  - Tooth fracture [Unknown]
  - Pain in jaw [Unknown]
  - Osteitis [Unknown]
  - Constipation [Unknown]
  - Faeces soft [Unknown]
  - Oropharyngeal pain [Unknown]
  - Swollen tongue [Unknown]
  - Gastritis [Unknown]
  - Gingivitis [Unknown]
  - Abdominal discomfort [Unknown]
  - Spider vein [Unknown]
  - Ear deformity acquired [Unknown]
  - Spondylolysis [Unknown]
  - Spondylolisthesis [Unknown]
  - Intervertebral disc degeneration [Unknown]
  - Bone pain [Recovering/Resolving]
  - Neoplasm skin [Unknown]
  - Vertebral foraminal stenosis [Unknown]
  - Renal neoplasm [Unknown]
  - Flank pain [Unknown]
  - Metastatic carcinoid tumour [Unknown]
  - Pleural effusion [Unknown]
  - Arthralgia [Unknown]
  - Gait disturbance [Unknown]
  - Exercise tolerance decreased [Unknown]
  - Dyspnoea exertional [Unknown]
  - Neoplasm [Unknown]
  - Bone loss [Unknown]
  - Pelvic pain [Unknown]
  - Paraesthesia [Unknown]
  - Joint range of motion decreased [Unknown]
  - Weight bearing difficulty [Unknown]
  - Myocardial infarction [Unknown]
  - Lymphadenopathy [Unknown]
  - Necrosis [Unknown]
  - Muscular weakness [Unknown]
  - Erythema [Unknown]
  - Spinal osteoarthritis [Unknown]
